FAERS Safety Report 25539758 (Version 2)
Quarter: 2025Q3

REPORT INFORMATION
  Report Type: Spontaneous
  Country: GB (occurrence: GB)
  Receive Date: 20250710
  Receipt Date: 20250723
  Transmission Date: 20251020
  Serious: Yes (Other)
  Sender: ELI LILLY AND COMPANY
  Company Number: None

PATIENT
  Sex: Male
  Weight: 85 kg

DRUGS (2)
  1. TADALAFIL [Suspect]
     Active Substance: TADALAFIL
     Indication: Radical prostatectomy
     Dosage: 5 MG, DAILY
     Route: 065
     Dates: start: 20250528, end: 20250608
  2. TADALAFIL [Concomitant]
     Active Substance: TADALAFIL
     Indication: Radical prostatectomy
     Route: 065
     Dates: start: 20250606, end: 20250608

REACTIONS (3)
  - Loss of consciousness [Unknown]
  - Hypotension [Recovered/Resolved with Sequelae]
  - Off label use [Unknown]

NARRATIVE: CASE EVENT DATE: 20250528
